FAERS Safety Report 7526329-6 (Version None)
Quarter: 2011Q2

REPORT INFORMATION
  Report Type: 
  Country: None (occurrence: None)
  Receive Date: 20110606
  Receipt Date: 20110520
  Transmission Date: 20111010
  Serious: No
  Sender: FDA-Public Use
  Company Number: US-B.I. PHARMACEUTICALS,INC./RIDGEFIELD-2011-BP-13625BP

PATIENT
  Sex: Male

DRUGS (7)
  1. LOSARTAN POTASSIUM [Concomitant]
     Indication: HYPERTENSION
  2. PRADAXA [Suspect]
     Indication: ATRIAL FIBRILLATION
     Dosage: 300 MG
     Route: 048
     Dates: start: 20110505
  3. ASPIRIN [Concomitant]
  4. SIMVASTATIN [Concomitant]
     Indication: BLOOD CHOLESTEROL INCREASED
  5. ACHIPHEX [Concomitant]
     Indication: GASTROOESOPHAGEAL REFLUX DISEASE
  6. POTASSIUM CHLORIDE [Concomitant]
  7. RANEXA [Concomitant]
     Indication: ATRIAL FIBRILLATION

REACTIONS (1)
  - ABDOMINAL DISTENSION [None]
